FAERS Safety Report 6250681-5 (Version None)
Quarter: 2009Q2

REPORT INFORMATION
  Report Type: 
  Country: None (occurrence: None)
  Receive Date: 20090630
  Receipt Date: 20090629
  Transmission Date: 20091009
  Serious: Yes (Hospitalization)
  Sender: FDA-Public Use
  Company Number: US-B.I. PHARMACEUTICALS,INC./RIDGEFIELD-2009-BP-04672BP

PATIENT
  Sex: Female

DRUGS (9)
  1. SPIRIVA [Suspect]
     Indication: CHRONIC OBSTRUCTIVE PULMONARY DISEASE
     Dosage: 18 MCG
     Route: 055
     Dates: start: 20050101
  2. SYNTHROID [Concomitant]
  3. LORATADINE [Concomitant]
  4. ASPIRIN [Concomitant]
  5. TRICOR [Concomitant]
  6. TRAMADOL HCL [Concomitant]
  7. PREVACID [Concomitant]
  8. PREVALITE [Concomitant]
  9. VITAMINS [Concomitant]

REACTIONS (6)
  - ABDOMINAL PAIN UPPER [None]
  - AMNESIA [None]
  - DEMENTIA [None]
  - INCORRECT ROUTE OF DRUG ADMINISTRATION [None]
  - NASAL DISORDER [None]
  - RENAL DISORDER [None]
